FAERS Safety Report 8445415-X (Version None)
Quarter: 2012Q2

REPORT INFORMATION
  Report Type: 
  Country: None (occurrence: None)
  Receive Date: 20120618
  Receipt Date: 20120614
  Transmission Date: 20120825
  Serious: Yes (Hospitalization)
  Sender: FDA-Public Use
  Company Number: JP-PFIZER INC-2012133976

PATIENT
  Age: 65 Year
  Sex: Male

DRUGS (2)
  1. NORVASC [Suspect]
     Indication: HYPERTENSION
     Dosage: 5 MG, 1X/DAY
     Route: 048
  2. AMLODIPINE BESYLATE [Suspect]
     Dosage: UNK
     Route: 048

REACTIONS (5)
  - ABDOMINAL DISTENSION [None]
  - DYSURIA [None]
  - WEIGHT INCREASED [None]
  - BRAIN STEM HAEMORRHAGE [None]
  - DECREASED APPETITE [None]
